FAERS Safety Report 10161717 (Version 1)
Quarter: 2014Q2

REPORT INFORMATION
  Report Type: Spontaneous
  Country: US (occurrence: None)
  Receive Date: 20140508
  Receipt Date: 20140508
  Transmission Date: 20141212
  Serious: Yes (Other)
  Sender: FDA-Public Use
  Company Number: None

PATIENT
  Age: 66 Year
  Sex: Female
  Weight: 52.62 kg

DRUGS (2)
  1. DEPO MEDROL [Suspect]
     Indication: HYPERSENSITIVITY
     Dosage: DEPO MEDROL INJECTION ONE 80 MG INJECTION GIVEN INTO/UNDER THE SKIN
     Route: 058
     Dates: start: 20140501
  2. DEPO MEDROL [Suspect]
     Indication: FUNGAL INFECTION
     Dosage: DEPO MEDROL INJECTION ONE 80 MG INJECTION GIVEN INTO/UNDER THE SKIN
     Route: 058
     Dates: start: 20140501

REACTIONS (10)
  - Skin disorder [None]
  - Condition aggravated [None]
  - Hypertension [None]
  - Tachycardia [None]
  - Arthralgia [None]
  - Myalgia [None]
  - Gastrointestinal disorder [None]
  - Respiratory disorder [None]
  - Gait disturbance [None]
  - Abdominal distension [None]
